FAERS Safety Report 25278658 (Version 1)
Quarter: 2025Q2

REPORT INFORMATION
  Report Type: Spontaneous
  Country: RO (occurrence: RO)
  Receive Date: 20250507
  Receipt Date: 20250507
  Transmission Date: 20250717
  Serious: Yes (Hospitalization, Other)
  Sender: AMGEN
  Company Number: RO-AMGEN-ROUSP2025084649

PATIENT
  Age: 67 Year
  Sex: Female

DRUGS (1)
  1. NPLATE [Suspect]
     Active Substance: ROMIPLOSTIM
     Indication: Immune thrombocytopenia
     Dosage: UNK, QWK (WEEKLY ACCORDING TO SPC ASSOCIATION WITH KRD)
     Route: 058
     Dates: start: 202303

REACTIONS (8)
  - Somnolence [Recovered/Resolved]
  - Lumbar vertebral fracture [Recovered/Resolved]
  - Neuropathy peripheral [Recovered/Resolved]
  - Loss of consciousness [Recovered/Resolved]
  - Haemorrhage [Recovered/Resolved]
  - Lethargy [Recovered/Resolved]
  - Fall [Recovered/Resolved]
  - Muscle disorder [Recovered/Resolved]

NARRATIVE: CASE EVENT DATE: 20230201
